FAERS Safety Report 17825803 (Version 1)
Quarter: 2020Q2

REPORT INFORMATION
  Report Type: Spontaneous
  Country: CN (occurrence: CN)
  Receive Date: 20200526
  Receipt Date: 20200526
  Transmission Date: 20200714
  Serious: Yes (Other)
  Sender: FDA-Public Use
  Company Number: CN-PFIZER INC-2020205175

PATIENT
  Age: 47 Year
  Sex: Female
  Weight: 53 kg

DRUGS (2)
  1. CYTOSAR [Suspect]
     Active Substance: CYTARABINE
     Indication: ACUTE MYELOID LEUKAEMIA
     Dosage: 2 G, 2X/DAY
     Route: 041
     Dates: start: 20200515, end: 20200517
  2. SODIUM CHLORIDE. [Concomitant]
     Active Substance: SODIUM CHLORIDE
     Indication: VEHICLE SOLUTION USE
     Dosage: 100 ML, 2X/DAY
     Route: 041
     Dates: start: 20200515, end: 20200517

REACTIONS (5)
  - Chest discomfort [Recovering/Resolving]
  - Myocardial ischaemia [Recovering/Resolving]
  - Heart rate increased [Recovering/Resolving]
  - Blood creatine phosphokinase decreased [Recovering/Resolving]
  - Respiratory rate increased [Recovering/Resolving]

NARRATIVE: CASE EVENT DATE: 20200517
